FAERS Safety Report 6863550-4 (Version None)
Quarter: 2010Q3

REPORT INFORMATION
  Report Type: 
  Country: None (occurrence: None)
  Receive Date: 20100721
  Receipt Date: 20080303
  Transmission Date: 20110219
  Serious: No
  Sender: FDA-Public Use
  Company Number: US-PFIZER INC-2008022093

PATIENT
  Sex: Female
  Weight: 77.272 kg

DRUGS (9)
  1. CHANTIX [Suspect]
     Indication: SMOKING CESSATION THERAPY
     Dates: start: 20080201
  2. THYROID TAB [Concomitant]
     Indication: THYROID DISORDER
     Route: 048
  3. ACYCLOVIR [Concomitant]
     Indication: HERPES VIRUS INFECTION
     Route: 048
  4. PAXIL [Concomitant]
     Indication: DEPRESSION
     Route: 048
  5. PAXIL [Concomitant]
     Indication: ANXIETY
  6. BUSPAR [Concomitant]
     Indication: DEPRESSION
     Route: 048
  7. BUSPAR [Concomitant]
     Indication: ANXIETY
  8. TRAZODONE HYDROCHLORIDE [Concomitant]
     Indication: DEPRESSION
     Route: 048
  9. TRAZODONE HYDROCHLORIDE [Concomitant]
     Indication: ANXIETY

REACTIONS (3)
  - FATIGUE [None]
  - JOINT SWELLING [None]
  - RASH [None]
